FAERS Safety Report 15642146 (Version 1)
Quarter: 2018Q4

REPORT INFORMATION
  Report Type: Spontaneous
  Country: US (occurrence: US)
  Receive Date: 20181115
  Receipt Date: 20181115
  Transmission Date: 20190205
  Serious: Yes (Hospitalization)
  Sender: FDA-Public Use
  Company Number: None

PATIENT
  Age: 74 Year
  Sex: Female

DRUGS (5)
  1. IBRANCE [Suspect]
     Active Substance: PALBOCICLIB
     Indication: BREAST CANCER FEMALE
     Route: 048
     Dates: start: 20171207, end: 20180928
  2. LISINOPRIL TAB 10MG [Concomitant]
  3. FASLODEX INJ 250MG/5ML [Concomitant]
  4. CAPECITABINE. [Suspect]
     Active Substance: CAPECITABINE
     Indication: BREAST CANCER FEMALE
     Route: 048
  5. ASPIRIN LOW TAB 81MG EC [Concomitant]

REACTIONS (2)
  - Blood potassium decreased [None]
  - Colitis [None]

NARRATIVE: CASE EVENT DATE: 20181024
